FAERS Safety Report 4865471-5 (Version None)
Quarter: 2005Q4

REPORT INFORMATION
  Report Type: 
  Country: None (occurrence: None)
  Receive Date: 20051223
  Receipt Date: 20051214
  Transmission Date: 20060501
  Serious: Yes (Other)
  Sender: FDA-Public Use
  Company Number: CA-ROCHE-428601

PATIENT
  Age: 71 Year
  Sex: Female
  Weight: 55 kg

DRUGS (6)
  1. TAMIFLU [Suspect]
     Dosage: DOSE DURATION = 5 DAYS
     Route: 048
  2. SLOW-K [Concomitant]
  3. ELTROXIN [Concomitant]
  4. RANITIDINE [Concomitant]
  5. HYDROMORPH CONTIN [Concomitant]
     Dosage: DOSAGE FORM = SRC
  6. DOCUSATE SODIUM [Concomitant]

REACTIONS (1)
  - HAEMATEMESIS [None]
